FAERS Safety Report 7744526-1 (Version None)
Quarter: 2011Q3

REPORT INFORMATION
  Report Type: 
  Country: None (occurrence: None)
  Receive Date: 20110912
  Receipt Date: 20110829
  Transmission Date: 20111222
  Serious: Yes (Other)
  Sender: FDA-Public Use
  Company Number: US-BAYER-2011-081721

PATIENT
  Age: 81 Year
  Sex: Female
  Weight: 73 kg

DRUGS (12)
  1. VOLTAREN [Concomitant]
  2. ZOLPIDEM [Concomitant]
  3. ACETYLSALICYLIC ACID SRT [Concomitant]
  4. VITAMIN TAB [Concomitant]
  5. PAXIL [Concomitant]
  6. ZOCOR [Concomitant]
  7. ACETAMINOPHEN [Concomitant]
  8. NAMENDA [Concomitant]
  9. TRICOR [Concomitant]
  10. ARICEPT [Concomitant]
  11. INSULIN [Concomitant]
  12. ALEVE (CAPLET) [Suspect]
     Indication: ARTHRITIS
     Dosage: 1 DF, BID
     Route: 048
     Dates: start: 20081001, end: 20101001

REACTIONS (2)
  - HYPERTENSION [None]
  - RENAL IMPAIRMENT [None]
